APPROVED DRUG PRODUCT: BUTORPHANOL TARTRATE
Active Ingredient: BUTORPHANOL TARTRATE
Strength: 2MG/ML
Dosage Form/Route: INJECTABLE;INJECTION
Application: A075559 | Product #002
Applicant: HOSPIRA INC
Approved: Mar 20, 2000 | RLD: No | RS: No | Type: DISCN